FAERS Safety Report 9819461 (Version 3)
Quarter: 2014Q2

REPORT INFORMATION
  Report Type: Spontaneous
  Country: JP (occurrence: JP)
  Receive Date: 20140115
  Receipt Date: 20140505
  Transmission Date: 20141212
  Serious: Yes (Other)
  Sender: FDA-Public Use
  Company Number: JP-PFIZER INC-2014011758

PATIENT
  Age: 18 Year
  Sex: Female
  Weight: 35 kg

DRUGS (5)
  1. ADRIACIN [Suspect]
     Indication: OSTEOSARCOMA
     Dosage: 23 MG, UNK
     Route: 042
     Dates: start: 201307, end: 201308
  2. METHOTREXATE [Concomitant]
     Dosage: UNK
     Dates: start: 20130530, end: 20130910
  3. CISPLATIN [Concomitant]
     Dosage: UNK
     Dates: start: 20130530, end: 20130530
  4. FINIBAX [Concomitant]
     Dosage: UNK
     Dates: start: 20130928, end: 20131125
  5. NEUTROGIN [Concomitant]
     Dosage: UNK
     Dates: start: 20130607, end: 20130812

REACTIONS (2)
  - Cardiac failure [Recovering/Resolving]
  - Disseminated intravascular coagulation [Recovered/Resolved]
